FAERS Safety Report 7774292-5 (Version None)
Quarter: 2011Q3

REPORT INFORMATION
  Report Type: 
  Country: None (occurrence: None)
  Receive Date: 20110920
  Receipt Date: 20110913
  Transmission Date: 20111222
  Serious: Yes (Hospitalization, Other)
  Sender: FDA-Public Use
  Company Number: 2009SP021074

PATIENT
  Age: 31 Year
  Sex: Female
  Weight: 99.7913 kg

DRUGS (4)
  1. DEPO-PROVERA [Suspect]
     Indication: CONTRACEPTION
     Dates: end: 20070101
  2. CYMBALTA [Concomitant]
  3. MULTI-VITAMIN [Concomitant]
  4. NUVARING [Suspect]
     Indication: CONTRACEPTION
     Dates: start: 20070501, end: 20070808

REACTIONS (27)
  - PULMONARY EMBOLISM [None]
  - JAUNDICE [None]
  - TACHYCARDIA [None]
  - AMENORRHOEA [None]
  - WHEEZING [None]
  - DEPRESSION [None]
  - COUGH [None]
  - DYSMENORRHOEA [None]
  - CERVICAL DYSPLASIA [None]
  - DRUG INEFFECTIVE [None]
  - PAIN IN EXTREMITY [None]
  - BODY TEMPERATURE DECREASED [None]
  - MELANOCYTIC NAEVUS [None]
  - PNEUMONIA [None]
  - GASTROOESOPHAGEAL REFLUX DISEASE [None]
  - CANDIDA TEST POSITIVE [None]
  - CHEST DISCOMFORT [None]
  - LUNG NEOPLASM [None]
  - DEEP VEIN THROMBOSIS [None]
  - OEDEMA PERIPHERAL [None]
  - ELECTROCARDIOGRAM T WAVE INVERSION [None]
  - HEADACHE [None]
  - DYSPNOEA [None]
  - CHEST PAIN [None]
  - BODY TEMPERATURE INCREASED [None]
  - ASTHMA [None]
  - MIGRAINE [None]
